FAERS Safety Report 13114577 (Version 3)
Quarter: 2017Q1

REPORT INFORMATION
  Report Type: Spontaneous
  Country: JP (occurrence: JP)
  Receive Date: 20170113
  Receipt Date: 20170328
  Transmission Date: 20170428
  Serious: Yes (Hospitalization, Other)
  Sender: FDA-Public Use
  Company Number: JP-GILEAD-2017-0252302AA

PATIENT
  Age: 58 Year
  Sex: Male
  Weight: 60 kg

DRUGS (7)
  1. HARVONI [Suspect]
     Active Substance: LEDIPASVIR\SOFOSBUVIR
     Indication: CHRONIC HEPATITIS C
     Dosage: 1 DF, QD
     Route: 048
     Dates: start: 20150918
  2. NEUROTROPIN                        /06251301/ [Concomitant]
     Active Substance: ORYCTOLAGUS CUNICULUS SKIN
     Indication: ARTHRALGIA
     Dosage: 4 DF, UNK
     Route: 048
     Dates: start: 20150918
  3. VOLTAREN [Concomitant]
     Active Substance: DICLOFENAC SODIUM
     Indication: ARTHRALGIA
     Dosage: 2 DF, UNK
     Route: 048
     Dates: start: 20150918
  4. GASTER [Concomitant]
     Active Substance: FAMOTIDINE
     Indication: GASTRITIS
     Dosage: 2 DF, UNK
     Route: 048
     Dates: start: 20150918
  5. ADALAT [Concomitant]
     Active Substance: NIFEDIPINE
     Indication: HYPERTENSION
     Dosage: 1 DF, UNK
     Route: 048
     Dates: start: 20150918
  6. TRAMCET [Concomitant]
     Active Substance: ACETAMINOPHEN\TRAMADOL
     Indication: ARTHRALGIA
     Dosage: 4 DF, UNK
     Route: 048
     Dates: start: 20150918
  7. ALBUTREPENONACOG ALFA [Concomitant]
     Indication: FACTOR IX DEFICIENCY
     Dosage: 4000 IU, UNK
     Route: 042
     Dates: start: 20150918

REACTIONS (3)
  - Osteoarthritis [Recovered/Resolved]
  - Periprosthetic fracture [Recovered/Resolved]
  - Fall [Recovered/Resolved]

NARRATIVE: CASE EVENT DATE: 20151113
